FAERS Safety Report 4460918-0 (Version None)
Quarter: 2004Q3

REPORT INFORMATION
  Report Type: 
  Country: None (occurrence: None)
  Receive Date: 20040928
  Receipt Date: 20040610
  Transmission Date: 20050211
  Serious: No
  Sender: FDA-Public Use
  Company Number: US-GLAXOSMITHKLINE-A0514153A

PATIENT
  Age: 55 Year
  Sex: Female

DRUGS (9)
  1. ADVAIR DISKUS 100/50 [Suspect]
     Indication: ASTHMA
     Dosage: 1PUFF TWICE PER DAY
     Route: 055
  2. LIPITOR [Concomitant]
  3. ESTRACE [Concomitant]
  4. ACIPHEX [Concomitant]
  5. POTASSIUM [Concomitant]
     Dosage: 10MEQ PER DAY
     Route: 048
     Dates: start: 20040525
  6. FUROSEMIDE [Concomitant]
     Dosage: 40MG PER DAY
     Route: 048
     Dates: start: 20040525
  7. ZOCOR [Concomitant]
     Dosage: 10MG PER DAY
     Route: 048
     Dates: start: 20011201
  8. IPRATROPIUM BROMIDE [Concomitant]
     Dosage: 10MG PER DAY
     Route: 048
  9. ALBUTEROL [Concomitant]
     Route: 055

REACTIONS (3)
  - EPISTAXIS [None]
  - PAIN [None]
  - PHARYNGOLARYNGEAL PAIN [None]
